FAERS Safety Report 10861308 (Version 1)
Quarter: 2015Q1

REPORT INFORMATION
  Report Type: Spontaneous
  Country: US (occurrence: None)
  Receive Date: 20150218
  Receipt Date: 20150218
  Transmission Date: 20150721
  Serious: No
  Sender: FDA-Public Use
  Company Number: None

PATIENT

DRUGS (1)
  1. SPINAL ANESTHESIA TRAY [Suspect]
     Active Substance: DEVICE
     Indication: EPIDURAL ANAESTHESIA
     Dosage: EPIDURAL SPINAL
     Route: 008
     Dates: start: 20150126, end: 20150213

REACTIONS (2)
  - Anaesthetic complication [None]
  - Product quality issue [None]
